FAERS Safety Report 4867603-1 (Version None)
Quarter: 2005Q4

REPORT INFORMATION
  Report Type: 
  Country: None (occurrence: None)
  Receive Date: 20051222
  Receipt Date: 20051212
  Transmission Date: 20060501
  Serious: Yes (Other)
  Sender: FDA-Public Use
  Company Number: A-US2005-11238

PATIENT
  Age: 86 Year
  Sex: Female
  Weight: 71.2 kg

DRUGS (13)
  1. TRACLEER [Suspect]
     Indication: PULMONARY HYPERTENSION
     Dosage: 125 MG, BID, ORAL; SEE IMAGE
     Route: 048
     Dates: end: 20050912
  2. TRACLEER [Suspect]
     Indication: PULMONARY HYPERTENSION
     Dosage: 125 MG, BID, ORAL; SEE IMAGE
     Route: 048
     Dates: start: 20050517
  3. TRICOR [Concomitant]
  4. SYNTHROID [Concomitant]
  5. PREMARIN [Concomitant]
  6. METOPROLOL SUCCINATE [Concomitant]
  7. LASIX [Concomitant]
  8. POTASSIUM (POTASSIUM) [Concomitant]
  9. DIOVAN [Concomitant]
  10. DIGOXIN [Concomitant]
  11. PAXIL [Concomitant]
  12. NEXIUM [Concomitant]
  13. NORVASC [Concomitant]

REACTIONS (4)
  - ALANINE AMINOTRANSFERASE INCREASED [None]
  - ASPARTATE AMINOTRANSFERASE INCREASED [None]
  - DYSPNOEA EXACERBATED [None]
  - HALLUCINATION [None]
